FAERS Safety Report 17069687 (Version 2)
Quarter: 2020Q1

REPORT INFORMATION
  Report Type: Report from Study
  Country: US (occurrence: US)
  Receive Date: 20191125
  Receipt Date: 20200109
  Transmission Date: 20200409
  Serious: Yes (Other)
  Sender: FDA-Public Use
  Company Number: US-UCBSA-2018043829

PATIENT
  Age: 35 Year
  Sex: Female
  Weight: 51.4 kg

DRUGS (11)
  1. CAFFEINE. [Concomitant]
     Active Substance: CAFFEINE
     Indication: PRODUCT USED FOR UNKNOWN INDICATION
     Dosage: 1 SERVING, 3.5, WEEK
     Route: 048
     Dates: start: 20160128, end: 20161027
  2. PRENATAL VITAMINS [Concomitant]
     Active Substance: VITAMINS
     Indication: HALO VISION
     Dosage: 1 DF, ONCE DAILY (QD)
     Route: 048
     Dates: start: 20160128, end: 20161027
  3. SUDAFED [Concomitant]
     Active Substance: PSEUDOEPHEDRINE HYDROCHLORIDE
     Indication: NASOPHARYNGITIS
     Dosage: 1 PILL 1 TOTAL
     Route: 048
     Dates: start: 20160621, end: 20160625
  4. TYLENOL EXTRA STRENGTH [Concomitant]
     Active Substance: ACETAMINOPHEN
     Dosage: 1000 MG, 3 WEEK
     Route: 048
     Dates: start: 20160528, end: 20161027
  5. TYLENOL EXTRA STRENGTH [Concomitant]
     Active Substance: ACETAMINOPHEN
     Indication: HEADACHE
     Dosage: 1000 MG, 8 WEEK
     Route: 048
     Dates: start: 20160402, end: 20160527
  6. CERTOLIZUMAB PEGOL RA [Suspect]
     Active Substance: CERTOLIZUMAB PEGOL
     Indication: CROHN^S DISEASE
  7. TUMS [Concomitant]
     Active Substance: CALCIUM CARBONATE
     Indication: DYSPEPSIA
     Dosage: 1 PILL 4 WEEK
     Route: 048
     Dates: start: 20160228, end: 20161027
  8. IRON [Concomitant]
     Active Substance: IRON
     Indication: BLOOD IRON DECREASED
     Dosage: 65 MG DAILY
     Route: 048
     Dates: start: 20160915, end: 20161027
  9. CERTOLIZUMAB PEGOL RA [Suspect]
     Active Substance: CERTOLIZUMAB PEGOL
     Indication: ANKYLOSING SPONDYLITIS
     Dosage: 400 MILLIGRAM, MONTHLY (QM)
     Dates: start: 20100701, end: 20161027
  10. FLU [Concomitant]
     Active Substance: INFLUENZA VIRUS VACCINE
     Indication: PRODUCT USED FOR UNKNOWN INDICATION
     Dosage: 1 SHOT TOTAL
     Route: 030
     Dates: start: 20160714, end: 20161027
  11. FOLIC ACID. [Concomitant]
     Active Substance: FOLIC ACID
     Indication: PRODUCT USED FOR UNKNOWN INDICATION
     Dosage: 400 MCG 1 DAY
     Route: 048
     Dates: start: 20160128, end: 20161027

REACTIONS (6)
  - Headache [Unknown]
  - Latent tuberculosis [Recovered/Resolved]
  - Nasopharyngitis [Recovered/Resolved]
  - Maternal exposure before pregnancy [Unknown]
  - Fatigue [Unknown]
  - Malaise [Unknown]

NARRATIVE: CASE EVENT DATE: 2014
